FAERS Safety Report 8907302 (Version 4)
Quarter: 2013Q3

REPORT INFORMATION
  Report Type: Spontaneous
  Country: US (occurrence: US)
  Receive Date: 20121114
  Receipt Date: 20130927
  Transmission Date: 20140515
  Serious: No
  Sender: FDA-Public Use
  Company Number: US-009507513-1211USA005564

PATIENT
  Age: 63 Year
  Sex: Male

DRUGS (3)
  1. PEG-INTRON [Suspect]
     Indication: HEPATITIS C
     Dosage: REDIPEN
     Route: 058
     Dates: start: 20121028, end: 20130228
  2. RIBAVIRIN [Suspect]
     Indication: HEPATITIS C
     Dosage: UNK
     Route: 048
     Dates: start: 20121028, end: 20130228
  3. VICTRELIS [Suspect]
     Indication: HEPATITIS C
     Dosage: UNK
     Route: 048
     Dates: start: 20121125, end: 20130228

REACTIONS (15)
  - Injection site reaction [Unknown]
  - Dysgeusia [Unknown]
  - Anaemia [Unknown]
  - Fatigue [Unknown]
  - Disturbance in attention [Unknown]
  - Rash [Unknown]
  - Pruritus [Unknown]
  - Irritability [Unknown]
  - Cough [Unknown]
  - Dyspepsia [Unknown]
  - Dysgeusia [Unknown]
  - Rash [Unknown]
  - Scratch [Unknown]
  - Viral load increased [Unknown]
  - Drug ineffective [Unknown]
